FAERS Safety Report 8102975-6 (Version None)
Quarter: 2012Q1

REPORT INFORMATION
  Report Type: 
  Country: None (occurrence: None)
  Receive Date: 20120201
  Receipt Date: 20120126
  Transmission Date: 20120608
  Serious: Yes (Death)
  Sender: FDA-Public Use
  Company Number: JP-ASTELLAS-2011JP006826

PATIENT
  Sex: Male
  Weight: 60 kg

DRUGS (7)
  1. PROGRAF [Suspect]
     Indication: RHEUMATOID ARTHRITIS
     Dosage: 1 MG, UID/QD
     Route: 048
     Dates: start: 20100323
  2. RHEUMATREX [Suspect]
     Indication: RHEUMATOID ARTHRITIS
     Dosage: 2 MG, BID
     Route: 048
     Dates: start: 20100123, end: 20100223
  3. RHEUMATREX [Suspect]
     Dosage: 6 MG, UID/QD
     Route: 048
     Dates: start: 20100223, end: 20100706
  4. LANSOPRAZOLE [Suspect]
     Dosage: 15 MG, UID/QD
     Route: 048
     Dates: start: 20100830, end: 20101101
  5. CELECOXIB [Suspect]
     Dosage: 200 MG, BID
     Route: 048
     Dates: start: 20100123, end: 20101101
  6. RHEUMATREX [Suspect]
     Dosage: 8 MG, UID/QD
     Route: 048
     Dates: start: 20100706, end: 20101101
  7. AZULFIDINE [Concomitant]
     Dosage: 1000 MG, UNKNOWN/D
     Route: 048
     Dates: start: 20100123, end: 20100123

REACTIONS (4)
  - METASTASES TO BONE [None]
  - BLADDER CANCER [None]
  - PNEUMONIA ASPIRATION [None]
  - PELVIC FRACTURE [None]
